FAERS Safety Report 5564090-5 (Version None)
Quarter: 2007Q4

REPORT INFORMATION
  Report Type: 
  Country: None (occurrence: None)
  Receive Date: 20071217
  Receipt Date: 20071205
  Transmission Date: 20080405
  Serious: Yes (Other)
  Sender: FDA-Public Use
  Company Number: DE-PFIZER INC-2007089915

PATIENT
  Sex: Female
  Weight: 56 kg

DRUGS (5)
  1. VFEND [Suspect]
     Indication: FUNGAL INFECTION
     Dosage: TEXT:2 TABLETS
     Route: 048
     Dates: start: 20070926, end: 20071010
  2. PULMOZYME [Concomitant]
     Route: 055
  3. BRONCHO SPRAY [Concomitant]
     Route: 055
  4. ATROVENT [Concomitant]
     Route: 055
  5. CIPROFLOXACIN [Concomitant]

REACTIONS (7)
  - ANOREXIA [None]
  - ASTHMA [None]
  - BACK PAIN [None]
  - FATIGUE [None]
  - NAUSEA [None]
  - PRODUCTIVE COUGH [None]
  - PYREXIA [None]
